FAERS Safety Report 5768518-7 (Version None)
Quarter: 2008Q2

REPORT INFORMATION
  Report Type: 
  Country: None (occurrence: None)
  Receive Date: 20080612
  Receipt Date: 20080306
  Transmission Date: 20081010
  Serious: No
  Sender: FDA-Public Use
  Company Number: US-ABBOTT-08P-163-0441432-00

PATIENT
  Sex: Female
  Weight: 48.578 kg

DRUGS (3)
  1. HUMIRA [Suspect]
     Indication: RHEUMATOID ARTHRITIS
     Route: 058
     Dates: start: 20050101
  2. PREDNISONE TAB [Concomitant]
     Indication: RHEUMATOID ARTHRITIS
     Route: 048
  3. CELECOXIB [Concomitant]
     Indication: RHEUMATOID ARTHRITIS
     Route: 048

REACTIONS (3)
  - CHILLS [None]
  - DEMENTIA [None]
  - DYSPNOEA [None]
